FAERS Safety Report 13496382 (Version 4)
Quarter: 2018Q1

REPORT INFORMATION
  Report Type: Spontaneous
  Country: LV (occurrence: LV)
  Receive Date: 20170428
  Receipt Date: 20180123
  Transmission Date: 20180508
  Serious: Yes (Hospitalization)
  Sender: FDA-Public Use
  Company Number: LV-BAYER-2017-079027

PATIENT
  Age: 35 Year
  Sex: Female

DRUGS (4)
  1. MIRENA [Suspect]
     Active Substance: LEVONORGESTREL
     Indication: CONTRACEPTION
     Dosage: 20 MCG/24HR, CONT
     Route: 015
     Dates: start: 2014, end: 20170407
  2. MIRENA [Suspect]
     Active Substance: LEVONORGESTREL
     Indication: CONTRACEPTION
     Dosage: UNK
  3. MIRENA [Suspect]
     Active Substance: LEVONORGESTREL
     Indication: MENORRHAGIA
  4. MIRENA [Suspect]
     Active Substance: LEVONORGESTREL
     Indication: MENORRHAGIA

REACTIONS (5)
  - Ectopic pregnancy with contraceptive device [Recovered/Resolved]
  - Drug ineffective [Recovered/Resolved]
  - Haemorrhagic anaemia [Recovered/Resolved]
  - Ruptured ectopic pregnancy [Recovered/Resolved]
  - Peritoneal haemorrhage [Recovered/Resolved]

NARRATIVE: CASE EVENT DATE: 20161129
